FAERS Safety Report 6237808-6 (Version None)
Quarter: 2009Q2

REPORT INFORMATION
  Report Type: 
  Country: None (occurrence: None)
  Receive Date: 20090617
  Receipt Date: 20090602
  Transmission Date: 20091009
  Serious: Yes (Hospitalization)
  Sender: FDA-Public Use
  Company Number: 8022420

PATIENT
  Age: 76 Year
  Sex: Female

DRUGS (2)
  1. KEPPRA [Suspect]
     Dosage: 1000 MG 1/D PO
     Route: 048
     Dates: start: 20061227, end: 20061229
  2. KEPPRA [Suspect]
     Dosage: 500 MG 1/D
     Dates: start: 20070103, end: 20070104

REACTIONS (1)
  - PANCYTOPENIA [None]
